FAERS Safety Report 21416875 (Version 1)
Quarter: 2022Q4

REPORT INFORMATION
  Report Type: Report from Study
  Country: IL (occurrence: IL)
  Receive Date: 20221006
  Receipt Date: 20221006
  Transmission Date: 20230112
  Serious: Yes (Other)
  Sender: FDA-Public Use
  Company Number: IL-TEVAIL-2022-IL-2079800

PATIENT

DRUGS (2)
  1. METHOTREXATE [Suspect]
     Active Substance: METHOTREXATE
     Indication: Lymphoma
     Dosage: AN INDUCTION PHASE OF TWICE-WEEKLY INJECTIONS FOR 1 MONTH, A CONSOLIDATION PHASE OF WEEKLY INJECT...
     Route: 050
  2. METHOTREXATE [Suspect]
     Active Substance: METHOTREXATE
     Indication: Eye disorder

REACTIONS (2)
  - Keratopathy [Recovered/Resolved]
  - Drug ineffective [Unknown]
